FAERS Safety Report 14432715 (Version 2)
Quarter: 2018Q1

REPORT INFORMATION
  Report Type: Report from Study
  Country: None (occurrence: PE)
  Receive Date: 20180124
  Receipt Date: 20180201
  Transmission Date: 20180509
  Serious: Yes (Death)
  Sender: FDA-Public Use
  Company Number: PE-ABBVIE-18S-127-2233059-00

PATIENT
  Sex: Male
  Weight: 65 kg

DRUGS (1)
  1. ZEMPLAR [Suspect]
     Active Substance: PARICALCITOL
     Indication: HYPERPARATHYROIDISM SECONDARY
     Dosage: POSTDIALYSIS
     Route: 042
     Dates: start: 20160924, end: 20170812

REACTIONS (1)
  - Renal cancer [Fatal]
